FAERS Safety Report 6662401-0 (Version None)
Quarter: 2010Q1

REPORT INFORMATION
  Report Type: 
  Country: None (occurrence: None)
  Receive Date: 20100331
  Receipt Date: 20100318
  Transmission Date: 20100710
  Serious: Yes (Death, Other)
  Sender: FDA-Public Use
  Company Number: GB-GENENTECH-299827

PATIENT

DRUGS (2)
  1. PULMOZYME [Suspect]
     Indication: PLEURAL INFECTION
     Dosage: 5 MG, UNK
     Route: 034
  2. ALTEPLASE [Suspect]
     Indication: PLEURAL INFECTION

REACTIONS (2)
  - DEATH [None]
  - INFECTION [None]
